FAERS Safety Report 9127362 (Version 4)
Quarter: 2014Q2

REPORT INFORMATION
  Report Type: Spontaneous
  Country: US (occurrence: US)
  Receive Date: 20130228
  Receipt Date: 20140609
  Transmission Date: 20141212
  Serious: Yes (Hospitalization)
  Sender: FDA-Public Use
  Company Number: US-CELGENEUS-163-21880-12120198

PATIENT
  Age: 72 Year
  Sex: Male
  Weight: 82.2 kg

DRUGS (75)
  1. ATENOLOL [Concomitant]
     Indication: PRODUCT USED FOR UNKNOWN INDICATION
     Route: 065
     Dates: start: 20110511
  2. ALLOPURINOL [Concomitant]
     Indication: PRODUCT USED FOR UNKNOWN INDICATION
     Route: 065
     Dates: start: 20110511, end: 20121206
  3. ALLOPURINOL [Concomitant]
     Route: 065
     Dates: start: 20111218, end: 20121125
  4. ALLOPURINOL [Concomitant]
     Route: 065
     Dates: start: 20121209, end: 20121214
  5. ACYCLOVIR [Concomitant]
     Indication: PRODUCT USED FOR UNKNOWN INDICATION
     Route: 065
     Dates: start: 20111207
  6. NEULASTA [Concomitant]
     Indication: ADVERSE EVENT
     Route: 065
     Dates: start: 20120823, end: 20121019
  7. NEULASTA [Concomitant]
     Route: 065
     Dates: start: 20121214
  8. TOPICORT [Concomitant]
     Indication: ADVERSE EVENT
     Route: 065
     Dates: start: 20120524, end: 20121207
  9. ARANESP [Concomitant]
     Indication: PRODUCT USED FOR UNKNOWN INDICATION
     Route: 065
     Dates: start: 20120823
  10. BACTRIM [Concomitant]
     Indication: PRODUCT USED FOR UNKNOWN INDICATION
     Route: 065
     Dates: start: 20111222, end: 20120606
  11. ASPIRIN [Concomitant]
     Indication: PRODUCT USED FOR UNKNOWN INDICATION
     Route: 065
     Dates: start: 20120320, end: 20121125
  12. ZOCOR [Concomitant]
     Indication: PRODUCT USED FOR UNKNOWN INDICATION
     Route: 065
     Dates: start: 20110511, end: 20121207
  13. MEPERIDINE [Concomitant]
     Indication: PRODUCT USED FOR UNKNOWN INDICATION
     Route: 065
     Dates: start: 20121003, end: 20121003
  14. MIDAZOLAM [Concomitant]
     Indication: PRODUCT USED FOR UNKNOWN INDICATION
     Route: 041
     Dates: start: 20121003, end: 20121003
  15. MIDAZOLAM [Concomitant]
     Route: 041
     Dates: start: 20121208, end: 20121212
  16. SENNA [Concomitant]
     Indication: ADVERSE EVENT
     Route: 065
     Dates: start: 20121125
  17. FUROSEMIDE [Concomitant]
     Indication: ADVERSE EVENT
     Route: 065
     Dates: start: 20121115, end: 20121208
  18. FUROSEMIDE [Concomitant]
     Route: 065
     Dates: start: 20121209, end: 20130109
  19. FUROSEMIDE [Concomitant]
     Dosage: 40 MILLIGRAM
     Route: 065
     Dates: start: 20130122
  20. FUROSEMIDE [Concomitant]
     Route: 065
     Dates: start: 20120929, end: 20120929
  21. ZOFRAN [Concomitant]
     Indication: PRODUCT USED FOR UNKNOWN INDICATION
     Route: 065
     Dates: start: 20121211
  22. CIPROFLOXACIN [Concomitant]
     Indication: PRODUCT USED FOR UNKNOWN INDICATION
     Route: 065
     Dates: start: 20121211, end: 20121221
  23. CIPROFLOXACIN [Concomitant]
     Route: 065
     Dates: start: 20130109
  24. FLUCANOZOLE [Concomitant]
     Indication: PRODUCT USED FOR UNKNOWN INDICATION
     Route: 065
     Dates: start: 20121211
  25. FLAGYL [Concomitant]
     Indication: PRODUCT USED FOR UNKNOWN INDICATION
     Route: 065
     Dates: start: 20121205, end: 20121219
  26. MAGNESIUM SULFATE [Concomitant]
     Indication: PRODUCT USED FOR UNKNOWN INDICATION
     Route: 065
     Dates: start: 20121207, end: 20121214
  27. MAGNESIUM SULFATE [Concomitant]
     Route: 065
     Dates: start: 20130130
  28. VELCADE [Concomitant]
     Indication: PRODUCT USED FOR UNKNOWN INDICATION
     Route: 065
     Dates: start: 20121207, end: 20121207
  29. VELCADE [Concomitant]
     Route: 065
     Dates: start: 20121208, end: 20121212
  30. VELCADE [Concomitant]
     Route: 065
     Dates: start: 20130116, end: 20130116
  31. CISPLATIN [Concomitant]
     Indication: PRODUCT USED FOR UNKNOWN INDICATION
     Route: 065
     Dates: start: 20121207, end: 20121207
  32. CISPLATIN [Concomitant]
     Route: 065
     Dates: start: 20121208, end: 20121212
  33. CISPLATIN [Concomitant]
     Route: 065
     Dates: start: 20130116, end: 20130116
  34. DOXORUBICIN [Concomitant]
     Indication: PRODUCT USED FOR UNKNOWN INDICATION
     Route: 065
     Dates: start: 20121208, end: 20121212
  35. DOXORUBICIN [Concomitant]
     Route: 065
     Dates: start: 20130116, end: 20130116
  36. AMBIEN [Concomitant]
     Indication: PRODUCT USED FOR UNKNOWN INDICATION
     Route: 065
     Dates: start: 20121208, end: 20121214
  37. MAALOX [Concomitant]
     Indication: PRODUCT USED FOR UNKNOWN INDICATION
     Dosage: 30 MILLILITER
     Route: 048
     Dates: start: 20121208, end: 20121214
  38. ACETAMINOPHEN [Concomitant]
     Indication: PRODUCT USED FOR UNKNOWN INDICATION
     Route: 048
     Dates: start: 20120929, end: 20120929
  39. ACETAMINOPHEN [Concomitant]
     Route: 048
     Dates: start: 20121208, end: 20121214
  40. BENADRYL [Concomitant]
     Indication: PRODUCT USED FOR UNKNOWN INDICATION
     Dosage: 25 MILLIGRAM
     Route: 048
     Dates: start: 20120929, end: 20120929
  41. BENADRYL [Concomitant]
     Dosage: 25 MILLIGRAM
     Route: 048
     Dates: start: 20121208, end: 20121208
  42. BENADRYL [Concomitant]
     Dosage: 25MG-50MG
     Route: 041
     Dates: start: 20121208, end: 20121208
  43. FENTANYL [Concomitant]
     Indication: PRODUCT USED FOR UNKNOWN INDICATION
     Route: 041
     Dates: start: 20121208, end: 20121212
  44. KAYEXALATE [Concomitant]
     Indication: PRODUCT USED FOR UNKNOWN INDICATION
     Route: 065
     Dates: start: 201212, end: 201212
  45. KAYEXALATE [Concomitant]
     Route: 065
     Dates: start: 20130109, end: 20130109
  46. ENSURE [Concomitant]
     Indication: ADVERSE EVENT
     Route: 065
     Dates: start: 20120920
  47. ALUMINUM AND MAGNESIUM HYDROXIDE/SIMETHICONE [Concomitant]
     Indication: PRODUCT USED FOR UNKNOWN INDICATION
     Route: 065
     Dates: start: 20121208, end: 20121214
  48. ETOPOSIDE [Concomitant]
     Indication: PRODUCT USED FOR UNKNOWN INDICATION
     Route: 065
     Dates: start: 20121207, end: 20121207
  49. ETOPOSIDE [Concomitant]
     Route: 065
     Dates: start: 20130116, end: 20130116
  50. CYCLOPHOSPHAMIDE [Concomitant]
     Indication: PRODUCT USED FOR UNKNOWN INDICATION
     Route: 065
     Dates: start: 20121207, end: 20121207
  51. CYCLOPHOSPHAMIDE [Concomitant]
     Route: 065
     Dates: start: 20130116, end: 20130116
  52. REVLIMID [Suspect]
     Indication: PLASMA CELL MYELOMA
     Dosage: 25 MILLIGRAM
     Route: 048
     Dates: start: 20120405, end: 20121010
  53. ELOTUZUMAB [Suspect]
     Indication: PLASMA CELL MYELOMA
     Dosage: 10 MILLIGRAM/KILOGRAM
     Route: 041
     Dates: start: 20120405, end: 20121101
  54. DEXAMETHASONE [Suspect]
     Indication: PLASMA CELL MYELOMA
     Dosage: 8 MILLIGRAM
     Route: 041
     Dates: start: 20120405, end: 20121101
  55. DEXAMETHASONE [Suspect]
     Route: 048
     Dates: start: 20120405, end: 20121108
  56. DEXAMETHASONE [Suspect]
     Route: 048
     Dates: start: 20121207, end: 20121207
  57. DEXAMETHASONE [Suspect]
     Route: 048
     Dates: start: 20120116, end: 20130116
  58. PRBC [Concomitant]
     Indication: PRODUCT USED FOR UNKNOWN INDICATION
     Route: 041
     Dates: start: 2012, end: 2012
  59. PRBC [Concomitant]
     Route: 041
     Dates: start: 2012, end: 2012
  60. PRBC [Concomitant]
     Route: 041
     Dates: start: 2012, end: 2012
  61. HYDROCORTISONE [Concomitant]
     Indication: ADVERSE EVENT
     Route: 065
     Dates: start: 20120507, end: 20120524
  62. POTASSIUM CHLORIDE [Concomitant]
     Indication: ADVERSE EVENT
     Route: 065
     Dates: start: 20120419, end: 20120419
  63. POTASSIUM CHLORIDE [Concomitant]
     Route: 065
     Dates: start: 20121128
  64. COLACE [Concomitant]
     Indication: ADVERSE EVENT
     Route: 065
     Dates: start: 20120419, end: 20120510
  65. LOPERAMIDE [Concomitant]
     Indication: ADVERSE EVENT
     Route: 065
     Dates: start: 20120415, end: 20120419
  66. LOPERAMIDE [Concomitant]
     Dosage: 6 MILLIGRAM
     Route: 065
     Dates: start: 20130130
  67. LIDOCAINE [Concomitant]
     Indication: PRODUCT USED FOR UNKNOWN INDICATION
     Route: 065
     Dates: start: 20120328, end: 20120328
  68. LIDOCAINE [Concomitant]
     Route: 065
     Dates: start: 20121003, end: 20121003
  69. LIDOCAINE [Concomitant]
     Route: 065
     Dates: start: 20121126, end: 20121126
  70. LIDOCAINE [Concomitant]
     Route: 065
     Dates: start: 20121207, end: 20121207
  71. WARFARIN [Concomitant]
     Indication: PRODUCT USED FOR UNKNOWN INDICATION
     Route: 065
     Dates: start: 20120111, end: 20120906
  72. TAMSULOSIN [Concomitant]
     Indication: PRODUCT USED FOR UNKNOWN INDICATION
     Route: 065
     Dates: start: 20111221, end: 20121210
  73. NIFEDIPINE [Concomitant]
     Indication: PRODUCT USED FOR UNKNOWN INDICATION
     Route: 065
     Dates: start: 20110511
  74. VICODIN [Concomitant]
     Indication: PRODUCT USED FOR UNKNOWN INDICATION
     Route: 065
     Dates: start: 20120323, end: 20120503
  75. CALCIUM CARBONATE [Concomitant]
     Indication: PRODUCT USED FOR UNKNOWN INDICATION
     Route: 065
     Dates: start: 20111219

REACTIONS (2)
  - Malignant pleural effusion [Recovered/Resolved]
  - Plasmacytoma [Recovered/Resolved with Sequelae]
